FAERS Safety Report 7211352-1 (Version None)
Quarter: 2011Q1

REPORT INFORMATION
  Report Type: 
  Country: None (occurrence: None)
  Receive Date: 20110105
  Receipt Date: 20101228
  Transmission Date: 20110831
  Serious: Yes (Other)
  Sender: FDA-Public Use
  Company Number: ES-JNJFOC-20100207843

PATIENT
  Sex: Female
  Weight: 75 kg

DRUGS (1)
  1. ORTHO EVRA [Suspect]
     Indication: CONTRACEPTION
     Dosage: ETHINYL ESTRADIOL 0.6MG/ NORELGESTROMIN 6MG
     Route: 062

REACTIONS (2)
  - DERMATITIS ALLERGIC [None]
  - APPLICATION SITE DERMATITIS [None]
